FAERS Safety Report 20792003 (Version 1)
Quarter: 2022Q2

REPORT INFORMATION
  Report Type: Spontaneous
  Country: PL (occurrence: PL)
  Receive Date: 20220505
  Receipt Date: 20220505
  Transmission Date: 20220721
  Serious: Yes (Hospitalization, Other)
  Sender: FDA-Public Use
  Company Number: PL-ALXN-A202205252

PATIENT
  Age: 5 Year
  Sex: Female

DRUGS (1)
  1. SOLIRIS [Suspect]
     Active Substance: ECULIZUMAB
     Indication: Atypical haemolytic uraemic syndrome
     Dosage: UNK
     Route: 042

REACTIONS (9)
  - Seizure [Unknown]
  - Paraparesis [Unknown]
  - Dystonia [Unknown]
  - Loss of consciousness [Recovered/Resolved]
  - Nerve injury [Unknown]
  - Areflexia [Recovered/Resolved]
  - Brain oedema [Unknown]
  - Polyneuropathy [Unknown]
  - Colitis [Unknown]
